FAERS Safety Report 7198958-3 (Version None)
Quarter: 2010Q4

REPORT INFORMATION
  Report Type: 
  Country: None (occurrence: None)
  Receive Date: 20101228
  Receipt Date: 20101213
  Transmission Date: 20110411
  Serious: Yes (Hospitalization)
  Sender: FDA-Public Use
  Company Number: GB-AMGEN-US395617

PATIENT

DRUGS (5)
  1. ETANERCEPT [Suspect]
     Indication: RHEUMATOID ARTHRITIS
     Dosage: 25 MG, 2 TIMES/WK
     Route: 058
     Dates: start: 20081015, end: 20091106
  2. PREDNISOLONE [Concomitant]
     Dosage: UNK UNK, UNK
  3. METHOTREXATE [Concomitant]
     Dosage: UNK UNK, UNK
  4. VIOXX [Concomitant]
     Dosage: UNK UNK, UNK
  5. FOSAMAX [Concomitant]
     Dosage: UNK UNK, UNK

REACTIONS (1)
  - METASTATIC MALIGNANT MELANOMA [None]
